FAERS Safety Report 11847260 (Version 11)
Quarter: 2020Q1

REPORT INFORMATION
  Report Type: Spontaneous
  Country: FR (occurrence: FR)
  Receive Date: 20151217
  Receipt Date: 20200130
  Transmission Date: 20200409
  Serious: Yes (Life-Threatening, Hospitalization, Other)
  Sender: FDA-Public Use
  Company Number: FR-009507513-1512FRA007302

PATIENT
  Sex: Female
  Weight: 50 kg

DRUGS (1)
  1. NEXPLANON [Suspect]
     Active Substance: ETONOGESTREL
     Indication: CONTRACEPTION
     Dosage: 1 IMPLANT IN THE LEFT ARM, SULCUS BICIPITALIS MEDIALIS
     Route: 058
     Dates: start: 20131220, end: 20190913

REACTIONS (25)
  - Abortion induced [Unknown]
  - Device embolisation [Recovered/Resolved]
  - Infertility female [Unknown]
  - Device difficult to use [Recovered/Resolved]
  - Surgery [Unknown]
  - Implant site haemorrhage [Unknown]
  - Thoracotomy [Unknown]
  - Device deployment issue [Recovered/Resolved]
  - Procedural pain [Recovering/Resolving]
  - Unintended pregnancy [Recovered/Resolved]
  - Implant site haematoma [Unknown]
  - Incorrect product administration duration [Unknown]
  - Complication associated with device [Recovered/Resolved]
  - Pain [Unknown]
  - Anxiety [Unknown]
  - Pregnancy with implant contraceptive [Recovered/Resolved]
  - Neuralgia [Unknown]
  - Amenorrhoea [Not Recovered/Not Resolved]
  - Complication of device removal [Recovered/Resolved]
  - Emotional disorder [Unknown]
  - Menorrhagia [Recovered/Resolved]
  - Insomnia [Unknown]
  - Crying [Unknown]
  - Scar [Unknown]
  - Menstruation irregular [Unknown]

NARRATIVE: CASE EVENT DATE: 20131220
